FAERS Safety Report 23804394 (Version 1)
Quarter: 2024Q2

REPORT INFORMATION
  Report Type: Report from Study
  Country: US (occurrence: None)
  Receive Date: 20240501
  Receipt Date: 20240501
  Transmission Date: 20240715
  Serious: Yes (Hospitalization)
  Sender: FDA-Public Use
  Company Number: 2024A100481

PATIENT
  Sex: Male

DRUGS (41)
  1. FASENRA [Suspect]
     Active Substance: BENRALIZUMAB
     Indication: Asthma
     Dosage: 30MG/ML EVERY EIGHT WEEKS
     Route: 058
  2. ESOMEPRAZOLE [Suspect]
     Active Substance: ESOMEPRAZOLE
     Indication: Asthma
     Route: 048
  3. SPIRONOLACTO POW [Concomitant]
  4. MUCINEX [Concomitant]
     Active Substance: GUAIFENESIN
  5. ALBUTEROL [Concomitant]
     Active Substance: ALBUTEROL
  6. ALENDRONATE [Concomitant]
     Active Substance: ALENDRONATE SODIUM
  7. ASPIRIN [Concomitant]
     Active Substance: ASPIRIN
  8. BENAZEPRIL [Concomitant]
     Active Substance: BENAZEPRIL HYDROCHLORIDE
  9. CALCIUM [Concomitant]
     Active Substance: CALCIUM
     Dosage: 600+ TAB 600-LOMG
  10. CARBAMAZEPINE [Concomitant]
     Active Substance: CARBAMAZEPINE
  11. CETIRIZINE [Concomitant]
     Active Substance: CETIRIZINE HYDROCHLORIDE
  12. CINNAMON [Concomitant]
     Active Substance: CINNAMON
  13. CLONAZEPAM [Concomitant]
     Active Substance: CLONAZEPAM
  14. COMBIVENT [Concomitant]
     Active Substance: ALBUTEROL SULFATE\IPRATROPIUM BROMIDE
     Dosage: 20-100MC
  15. DELSYM [Concomitant]
     Active Substance: DEXTROMETHORPHAN
     Dosage: 30MG/SML
  16. DICYCLOMINE [Concomitant]
     Active Substance: DICYCLOMINE HYDROCHLORIDE
  17. ELIQUIS [Concomitant]
     Active Substance: APIXABAN
  18. FIBER THERAPY (CALCIUM POLYCARBOPHIL) [Concomitant]
     Active Substance: CALCIUM POLYCARBOPHIL
  19. FINASTERIDE [Concomitant]
     Active Substance: FINASTERIDE
  20. FISH OIL [Concomitant]
     Active Substance: FISH OIL
  21. FLUTICASONE [Concomitant]
     Active Substance: FLUTICASONE
  22. FUROSEMIDE [Concomitant]
     Active Substance: FUROSEMIDE
  23. GABAPENTIN [Concomitant]
     Active Substance: GABAPENTIN
  24. GEMFIBROZIL [Concomitant]
     Active Substance: GEMFIBROZIL
  25. GLUCOSAMINE [Concomitant]
     Active Substance: GLUCOSAMINE
  26. HYDROXYZINE [Concomitant]
     Active Substance: HYDROXYZINE HYDROCHLORIDE
  27. IRON [Concomitant]
     Active Substance: IRON
  28. LEVETIRACETAM [Concomitant]
     Active Substance: LEVETIRACETAM
  29. LIDOCAINE [Concomitant]
     Active Substance: LIDOCAINE
  30. LINZESS [Concomitant]
     Active Substance: LINACLOTIDE
  31. MELOXICAM [Concomitant]
     Active Substance: MELOXICAM
  32. METOPROLOL [Concomitant]
     Active Substance: METOPROLOL
  33. POTASSIUM [Concomitant]
     Active Substance: POTASSIUM
  34. PRAMIPEXOLE [Concomitant]
     Active Substance: PRAMIPEXOLE\PRAMIPEXOLE DIHYDROCHLORIDE
  35. PRIMIDONE [Concomitant]
     Active Substance: PRIMIDONE
  36. PROBIOTIC AC [Concomitant]
  37. TRELEGY ELLIPTA [Concomitant]
     Active Substance: FLUTICASONE FUROATE\UMECLIDINIUM BROMIDE\VILANTEROL TRIFENATATE
     Dosage: AEP 200-62.5
  38. VlCKS BABY RU OIN [Concomitant]
  39. VITAMIN B12 [Concomitant]
     Active Substance: CYANOCOBALAMIN
  40. VITAMIN D3 [Concomitant]
     Active Substance: CHOLECALCIFEROL
  41. ZINC [Concomitant]
     Active Substance: PYRITHIONE ZINC\ZINC\ZINC CHLORIDE

REACTIONS (5)
  - Carbon dioxide increased [Not Recovered/Not Resolved]
  - Fall [Not Recovered/Not Resolved]
  - Cough [Not Recovered/Not Resolved]
  - Oedema peripheral [Not Recovered/Not Resolved]
  - Drug ineffective [Unknown]
